FAERS Safety Report 19241607 (Version 2)
Quarter: 2021Q2

REPORT INFORMATION
  Report Type: Spontaneous
  Country: RU (occurrence: RU)
  Receive Date: 20210511
  Receipt Date: 20210518
  Transmission Date: 20210717
  Serious: Yes (Other)
  Sender: FDA-Public Use
  Company Number: NVSC2021RU091528

PATIENT
  Sex: Male

DRUGS (7)
  1. KEPPRA [Concomitant]
     Active Substance: LEVETIRACETAM
     Indication: PRODUCT USED FOR UNKNOWN INDICATION
     Dosage: UNK
     Route: 065
     Dates: start: 20200713, end: 20200727
  2. TEMOZOLOMIDE. [Suspect]
     Active Substance: TEMOZOLOMIDE
     Indication: GLIONEURONAL TUMOUR
     Dosage: 200 MG/M2, QD CYCLE 2
     Route: 048
  3. TOPIRAMATE. [Concomitant]
     Active Substance: TOPIRAMATE
     Indication: PRODUCT USED FOR UNKNOWN INDICATION
     Dosage: UNK, BID
     Route: 065
     Dates: end: 20200727
  4. OXCARBAZEPINE. [Concomitant]
     Active Substance: OXCARBAZEPINE
     Indication: PRODUCT USED FOR UNKNOWN INDICATION
     Dosage: 450 MG, BID
     Route: 065
     Dates: end: 20200727
  5. EVEROLIMUS. [Suspect]
     Active Substance: EVEROLIMUS
     Indication: ASTROCYTOMA
     Dosage: 5 MG/M2, QD (SINGLE DOSE 5 MG/DAY)
     Route: 048
     Dates: start: 20200220, end: 20200727
  6. TEMOZOLOMIDE. [Suspect]
     Active Substance: TEMOZOLOMIDE
     Indication: ASTROCYTOMA
     Dosage: 150 MG/M2, QD (DAY?1 TO 5) CYCLE 1
     Route: 048
  7. EVEROLIMUS. [Suspect]
     Active Substance: EVEROLIMUS
     Indication: GLIONEURONAL TUMOUR

REACTIONS (3)
  - Haematotoxicity [Unknown]
  - Hyperlipidaemia [Unknown]
  - Product use in unapproved indication [Unknown]
